FAERS Safety Report 14008905 (Version 2)
Quarter: 2017Q3

REPORT INFORMATION
  Report Type: Report from Study
  Country: US (occurrence: US)
  Receive Date: 20170925
  Receipt Date: 20170926
  Transmission Date: 20171128
  Serious: Yes (Hospitalization)
  Sender: FDA-Public Use
  Company Number: US-PFIZER INC-2017332931

PATIENT
  Age: 22 Year
  Sex: Male
  Weight: 55.5 kg

DRUGS (15)
  1. MYLOTARG [Suspect]
     Active Substance: GEMTUZUMAB OZOGAMICIN
     Indication: ACUTE MYELOID LEUKAEMIA
     Dosage: NO DOSE GIVEN
  2. MICAFUNGIN [Concomitant]
     Active Substance: MICAFUNGIN
  3. VITAMIN D2 [Concomitant]
     Active Substance: ERGOCALCIFEROL
  4. HYDREA [Concomitant]
     Active Substance: HYDROXYUREA
  5. OXYCODONE [Concomitant]
     Active Substance: OXYCODONE
  6. ACYCLOVIR. [Concomitant]
     Active Substance: ACYCLOVIR
  7. URSODIOL. [Concomitant]
     Active Substance: URSODIOL
  8. MAG 64 [Concomitant]
  9. PREDNISONE. [Concomitant]
     Active Substance: PREDNISONE
  10. PANTOPRAZOLE [Concomitant]
     Active Substance: PANTOPRAZOLE
  11. BACTRIM DS [Concomitant]
     Active Substance: SULFAMETHOXAZOLE\TRIMETHOPRIM
  12. ZOFRAN [Concomitant]
     Active Substance: ONDANSETRON HYDROCHLORIDE
  13. TACROLIMUS. [Concomitant]
     Active Substance: TACROLIMUS
  14. CIPROFLOXACIN. [Concomitant]
     Active Substance: CIPROFLOXACIN
  15. ALLOPURINOL. [Concomitant]
     Active Substance: ALLOPURINOL

REACTIONS (2)
  - Abdominal pain [Recovered/Resolved]
  - Febrile neutropenia [Recovered/Resolved]

NARRATIVE: CASE EVENT DATE: 20170728
